FAERS Safety Report 4530476-0 (Version None)
Quarter: 2004Q4

REPORT INFORMATION
  Report Type: 
  Country: None (occurrence: None)
  Receive Date: 20041216
  Receipt Date: 20041207
  Transmission Date: 20050328
  Serious: Yes (Hospitalization)
  Sender: FDA-Public Use
  Company Number: DEWYE260807DEC04

PATIENT
  Age: 66 Year
  Sex: Female

DRUGS (3)
  1. LEVONORGESTREL AND ETHINYL ESTRADIOL [Suspect]
     Dosage: 4 TABLETS ORAL
     Route: 048
     Dates: start: 20041207, end: 20041207
  2. ALCOHOL (ETHANOL, ,0) [Suspect]
     Dosage: 4 GLASSES OF WINE ORAL
     Route: 048
     Dates: start: 20041207, end: 20041207
  3. DOXYCYCLINE [Suspect]
     Dosage: 3 TABLETS ORAL
     Route: 048
     Dates: start: 20041207, end: 20041207

REACTIONS (2)
  - ALCOHOL POISONING [None]
  - INTENTIONAL OVERDOSE [None]
